FAERS Safety Report 8096390-1 (Version None)
Quarter: 2012Q1

REPORT INFORMATION
  Report Type: 
  Country: None (occurrence: None)
  Receive Date: 20120129
  Receipt Date: 20111109
  Transmission Date: 20120608
  Serious: No
  Sender: FDA-Public Use
  Company Number: US-ABBOTT-11P-163-0872791-00

PATIENT
  Age: 61 Year
  Sex: Female

DRUGS (22)
  1. HUMIRA [Suspect]
     Indication: RHEUMATOID ARTHRITIS
  2. HUMIRA [Suspect]
  3. CYMBALTA [Concomitant]
     Indication: DEPRESSION
     Dosage: 60 MG DAILY
  4. LEVOTHYROXINE SODIUM [Concomitant]
     Indication: HYPOTHYROIDISM
  5. ZYLOPRIM [Concomitant]
     Indication: EYE DISORDER
     Dosage: ONE DROP BOTH EYES EVERY NIGHT
     Route: 047
  6. CRESTOR [Concomitant]
     Indication: PRODUCT USED FOR UNKNOWN INDICATION
  7. DILTIAZEM [Concomitant]
     Indication: CARDIAC DISORDER
  8. TYLENOL W/ CODEINE [Concomitant]
     Indication: PAIN
     Dosage: 1-2 PRN
  9. SINGULAIR [Concomitant]
     Indication: HYPERSENSITIVITY
  10. WELLBUTRIN [Concomitant]
     Indication: DEPRESSION
     Dosage: 150 MG
  11. ASPIRIN [Concomitant]
     Indication: MYOCARDIAL INFARCTION
  12. LIDODERM [Concomitant]
     Indication: BACK PAIN
     Dosage: 700 MG PATCH AT BEDTIME
  13. LISINOPRIL [Concomitant]
     Indication: CARDIAC DISORDER
  14. RANITIDINE [Concomitant]
     Indication: HYPERSENSITIVITY
  15. GLUCOSAMINE + CHONDROITIN [Concomitant]
     Indication: PRODUCT USED FOR UNKNOWN INDICATION
     Dosage: 2 TABLESPOONS A DAY
  16. TREMORINE [Concomitant]
     Indication: AFFECT LABILITY
  17. TRAZODONE HCL [Concomitant]
     Indication: PRODUCT USED FOR UNKNOWN INDICATION
     Dosage: 1-2 TABLETS PRN
  18. ARICEPT [Concomitant]
     Indication: PRODUCT USED FOR UNKNOWN INDICATION
     Dosage: IN THE EVENING
  19. OXYBUTYNIN CHLORIDE [Concomitant]
     Indication: BLADDER DISORDER
  20. TREMORINE [Concomitant]
     Indication: HOT FLUSH
  21. CALCIUM [Concomitant]
     Indication: PRODUCT USED FOR UNKNOWN INDICATION
  22. ALLERGY SHOTS [Concomitant]
     Indication: PRODUCT USED FOR UNKNOWN INDICATION

REACTIONS (3)
  - ANXIETY [None]
  - PAIN [None]
  - HAEMORRHOIDS [None]
